FAERS Safety Report 9320995 (Version 2)
Quarter: 2013Q3

REPORT INFORMATION
  Report Type: Spontaneous
  Country: US (occurrence: US)
  Receive Date: 20130531
  Receipt Date: 20130911
  Transmission Date: 20140515
  Serious: No
  Sender: FDA-Public Use
  Company Number: US-PFIZER INC-2013165284

PATIENT
  Age: 89 Year
  Sex: Female
  Weight: 60.3 kg

DRUGS (5)
  1. LYRICA [Suspect]
     Indication: PAIN
     Dosage: 800 MG, 1X/DAY
     Route: 048
     Dates: start: 201302
  2. LYRICA [Suspect]
     Indication: HERPES ZOSTER
     Dosage: 200 MG (4 CAPSULES OF 50MG), 3X/DAY
     Route: 048
     Dates: start: 201303
  3. LOSARTAN [Concomitant]
     Indication: HYPERTENSION
     Dosage: 50 MG, 1X/DAY
  4. TYLENOL [Concomitant]
     Indication: PAIN
     Dosage: UNK, 3X/DAY
  5. LUNESTA [Concomitant]
     Indication: SLEEP DISORDER
     Dosage: UNK

REACTIONS (4)
  - Pain in extremity [Not Recovered/Not Resolved]
  - Weight increased [Unknown]
  - Constipation [Unknown]
  - Arthralgia [Not Recovered/Not Resolved]
